FAERS Safety Report 15860406 (Version 3)
Quarter: 2019Q1

REPORT INFORMATION
  Report Type: Report from Study
  Country: US (occurrence: US)
  Receive Date: 20190123
  Receipt Date: 20190305
  Transmission Date: 20190417
  Serious: Yes (Other)
  Sender: FDA-Public Use
  Company Number: US-JAZZ-2019-US-000900

PATIENT
  Sex: Male

DRUGS (11)
  1. ALPHA LIPOIC ACID [Concomitant]
     Active Substance: .ALPHA.-LIPOIC ACID
  2. DEXILANT [Concomitant]
     Active Substance: DEXLANSOPRAZOLE
  3. ALPRAZOLAM. [Concomitant]
     Active Substance: ALPRAZOLAM
  4. CURCUMIN [Concomitant]
     Active Substance: CURCUMIN
  5. RAPAFLO [Concomitant]
     Active Substance: SILODOSIN
  6. XYREM [Suspect]
     Active Substance: SODIUM OXYBATE
     Indication: NARCOLEPSY
     Dosage: 4 G, BID
     Route: 048
     Dates: start: 201505
  7. NUVIGIL [Concomitant]
     Active Substance: ARMODAFINIL
  8. RIVASTIGMINE. [Concomitant]
     Active Substance: RIVASTIGMINE
  9. XYREM [Suspect]
     Active Substance: SODIUM OXYBATE
     Indication: CATAPLEXY
  10. XANTOFYL [Concomitant]
  11. CIALIS [Concomitant]
     Active Substance: TADALAFIL

REACTIONS (1)
  - Lacrimation increased [Unknown]
